FAERS Safety Report 8502815-7 (Version None)
Quarter: 2012Q3

REPORT INFORMATION
  Report Type: 
  Country: None (occurrence: None)
  Receive Date: 20120711
  Receipt Date: 20120709
  Transmission Date: 20120928
  Serious: Yes (Other)
  Sender: FDA-Public Use
  Company Number: US-PFIZER INC-2012164324

PATIENT
  Sex: Female

DRUGS (4)
  1. GEODON [Suspect]
     Dosage: UNK
  2. RISPERIDONE [Concomitant]
     Dosage: UNK
  3. GEODON [Suspect]
     Dosage: 40 MG, UNK
  4. VIIBRYD [Concomitant]
     Dosage: UNK

REACTIONS (3)
  - COGNITIVE DISORDER [None]
  - PETIT MAL EPILEPSY [None]
  - DRUG INEFFECTIVE [None]
